FAERS Safety Report 12048030 (Version 1)
Quarter: 2016Q1

REPORT INFORMATION
  Report Type: Spontaneous
  Country: None (occurrence: None)
  Receive Date: 20160208
  Receipt Date: 20160208
  Transmission Date: 20160526
  Serious: No
  Sender: FDA-Public Use
  Company Number: None

PATIENT
  Age: 40 Year
  Sex: Female
  Weight: 63 kg

DRUGS (3)
  1. VITAMIN SUPPLEMENTS [Concomitant]
     Active Substance: VITAMINS
  2. VICKS VAPORUB [Suspect]
     Active Substance: CAMPHOR (SYNTHETIC)\EUCALYPTUS OIL\MENTHOL
     Indication: PAIN
     Dates: start: 20160205, end: 20160206
  3. VICKS VAPORUB [Suspect]
     Active Substance: CAMPHOR (SYNTHETIC)\EUCALYPTUS OIL\MENTHOL
     Indication: INFLUENZA
     Dates: start: 20160205, end: 20160206

REACTIONS (4)
  - Application site swelling [None]
  - Chest discomfort [None]
  - Ocular hyperaemia [None]
  - Dyspnoea [None]

NARRATIVE: CASE EVENT DATE: 20160206
